FAERS Safety Report 5895565-7 (Version None)
Quarter: 2008Q3

REPORT INFORMATION
  Report Type: 
  Country: None (occurrence: None)
  Receive Date: 20080924
  Receipt Date: 20080201
  Transmission Date: 20090109
  Serious: Yes (Other)
  Sender: FDA-Public Use
  Company Number: US-ASTRAZENECA-2006UW07967

PATIENT
  Age: 8332 Day
  Sex: Male
  Weight: 136.1 kg

DRUGS (6)
  1. SEROQUEL [Suspect]
     Indication: SCHIZOPHRENIA
     Dosage: 100 MG TO 900 MG
     Route: 048
     Dates: start: 20050701, end: 20070801
  2. SEROQUEL [Suspect]
     Indication: DEPRESSION
     Dosage: 100 MG TO 900 MG
     Route: 048
     Dates: start: 20050701, end: 20070801
  3. GEODON [Concomitant]
     Dates: start: 20060801, end: 20070215
  4. ABILIFY [Concomitant]
     Dates: start: 20050601, end: 20060701
  5. LAMICTAL [Concomitant]
     Dates: start: 20061205
  6. RISPERDAL [Concomitant]

REACTIONS (2)
  - DIABETES MELLITUS [None]
  - PANCREATITIS [None]
